FAERS Safety Report 10382567 (Version 1)
Quarter: 2014Q3

REPORT INFORMATION
  Report Type: Spontaneous
  Country: US (occurrence: US)
  Receive Date: 20140813
  Receipt Date: 20140813
  Transmission Date: 20150326
  Serious: No
  Sender: FDA-Public Use
  Company Number: US-SA-2013SA097758

PATIENT
  Sex: Female

DRUGS (1)
  1. MULTAQ [Suspect]
     Active Substance: DRONEDARONE
     Dosage: TAKEN FROM: FOR A COUPLE YEARS
     Route: 048

REACTIONS (2)
  - Sciatica [Unknown]
  - Nasopharyngitis [Unknown]
